FAERS Safety Report 9798650 (Version 1)
Quarter: 2014Q1

REPORT INFORMATION
  Report Type: Spontaneous
  Country: US (occurrence: US)
  Receive Date: 20140106
  Receipt Date: 20140106
  Transmission Date: 20141002
  Serious: No
  Sender: FDA-Public Use
  Company Number: US-GILEAD-2010-0029576

PATIENT
  Sex: Female

DRUGS (2)
  1. LETAIRIS [Suspect]
     Indication: PULMONARY ARTERIAL HYPERTENSION
     Route: 048
     Dates: start: 20100112
  2. MULTIVITAMIN [Concomitant]

REACTIONS (4)
  - Fatigue [Unknown]
  - Chest pain [Unknown]
  - Painful respiration [Unknown]
  - Haemoglobin decreased [Unknown]
